FAERS Safety Report 7928197-7 (Version None)
Quarter: 2011Q4

REPORT INFORMATION
  Report Type: 
  Country: None (occurrence: None)
  Receive Date: 20111118
  Receipt Date: 20111114
  Transmission Date: 20120403
  Serious: Yes (Death)
  Sender: FDA-Public Use
  Company Number: US-SANOFI-AVENTIS-2011SA074816

PATIENT
  Sex: Male

DRUGS (8)
  1. METOPROLOL TARTRATE [Concomitant]
  2. POTASSIUM [Concomitant]
  3. PLAVIX [Suspect]
     Dates: start: 20090910
  4. LASIX [Concomitant]
  5. DIGOXIN [Concomitant]
  6. LIPITOR [Concomitant]
  7. ASPIRIN [Concomitant]
  8. ALPRAZOLAM [Concomitant]

REACTIONS (1)
  - RENAL FAILURE [None]
